FAERS Safety Report 8543301-8 (Version None)
Quarter: 2012Q2

REPORT INFORMATION
  Report Type: 
  Country: None (occurrence: None)
  Receive Date: 20120412
  Receipt Date: 20081113
  Transmission Date: 20120825
  Serious: Yes (Other)
  Sender: FDA-Public Use
  Company Number: PHEH2006US03646

PATIENT
  Age: 50 Year
  Sex: Female
  Weight: 59 kg

DRUGS (13)
  1. ZOMETA [Suspect]
     Indication: METASTASES TO BONE
     Dosage: MONTHLY
     Dates: end: 20051001
  2. VITAMIN B12 [Concomitant]
  3. AREDIA [Suspect]
     Dosage: MONTHLY
  4. TYLENOL W/ CODEINE NO. 3 [Concomitant]
  5. FEMARA [Concomitant]
  6. FASLODEX [Concomitant]
  7. TRIAMTERENE (TRIAMTERENE) [Concomitant]
  8. RADIATION (NO INGREDIENTS/SUBSTANCES) [Concomitant]
  9. DEXAMETHASONE SODIUM PHOSPHATE [Concomitant]
  10. VITAMIN E [Concomitant]
  11. ANTINEOPLASTIC AGENTS (NO INGREDIENTS/SUBSTANCES) [Concomitant]
  12. DYAZIDE [Concomitant]
  13. POTASSIUM CHLORIDE [Concomitant]

REACTIONS (13)
  - NEOPLASM MALIGNANT [None]
  - SWOLLEN TONGUE [None]
  - TONGUE DISORDER [None]
  - DECREASED INTEREST [None]
  - OSTEONECROSIS [None]
  - BONE DISORDER [None]
  - ORAL PAIN [None]
  - ANXIETY [None]
  - TOOTH EXTRACTION [None]
  - BACTERIAL INFECTION [None]
  - PAIN [None]
  - BONE DEBRIDEMENT [None]
  - PRIMARY SEQUESTRUM [None]
